FAERS Safety Report 20036421 (Version 2)
Quarter: 2022Q4

REPORT INFORMATION
  Report Type: Other
  Country: JP (occurrence: JP)
  Receive Date: 20211105
  Receipt Date: 20221213
  Transmission Date: 20230113
  Serious: Yes (Hospitalization, Other)
  Sender: FDA-Public Use
  Company Number: JP-CHUGAI-A2020033796ROCHE

PATIENT
  Age: 51 Year
  Sex: Female

DRUGS (45)
  1. ATEZOLIZUMAB [Suspect]
     Active Substance: ATEZOLIZUMAB
     Indication: Non-small cell lung cancer
     Route: 041
     Dates: start: 20200210, end: 20200324
  2. ATEZOLIZUMAB [Suspect]
     Active Substance: ATEZOLIZUMAB
     Route: 041
     Dates: start: 20200407, end: 20200407
  3. ATEZOLIZUMAB [Suspect]
     Active Substance: ATEZOLIZUMAB
     Route: 041
     Dates: start: 20200508, end: 20200508
  4. ATEZOLIZUMAB [Suspect]
     Active Substance: ATEZOLIZUMAB
     Route: 041
     Dates: start: 20200610, end: 20200610
  5. BEVACIZUMAB [Suspect]
     Active Substance: BEVACIZUMAB
     Indication: Non-small cell lung cancer
     Route: 041
     Dates: start: 20200210, end: 20200303
  6. BEVACIZUMAB [Suspect]
     Active Substance: BEVACIZUMAB
     Indication: Metastases to bone
     Route: 041
     Dates: start: 20200324, end: 20200324
  7. BEVACIZUMAB [Suspect]
     Active Substance: BEVACIZUMAB
     Route: 041
     Dates: start: 20200407, end: 20200407
  8. BEVACIZUMAB [Suspect]
     Active Substance: BEVACIZUMAB
     Route: 041
     Dates: start: 20200508, end: 20200508
  9. BEVACIZUMAB [Suspect]
     Active Substance: BEVACIZUMAB
     Route: 041
     Dates: start: 20200610, end: 20200610
  10. CARBOPLATIN [Concomitant]
     Active Substance: CARBOPLATIN
     Indication: Non-small cell lung cancer
     Route: 041
     Dates: start: 20200210, end: 20200324
  11. CARBOPLATIN [Concomitant]
     Active Substance: CARBOPLATIN
     Route: 041
     Dates: start: 20200407, end: 20200407
  12. CARBOPLATIN [Concomitant]
     Active Substance: CARBOPLATIN
     Route: 041
     Dates: start: 20200508, end: 20200508
  13. PACLITAXEL [Concomitant]
     Active Substance: PACLITAXEL
     Indication: Non-small cell lung cancer
     Route: 041
     Dates: start: 20200210, end: 20200324
  14. PACLITAXEL [Concomitant]
     Active Substance: PACLITAXEL
     Route: 041
     Dates: start: 20200407, end: 20200407
  15. PACLITAXEL [Concomitant]
     Active Substance: PACLITAXEL
     Route: 041
     Dates: start: 20200508, end: 20200508
  16. EMEND [Concomitant]
     Active Substance: APREPITANT
     Indication: Prophylaxis
     Route: 048
     Dates: start: 20200210, end: 20200210
  17. EMEND [Concomitant]
     Active Substance: APREPITANT
     Route: 048
     Dates: start: 20200211, end: 20200212
  18. EMEND [Concomitant]
     Active Substance: APREPITANT
     Route: 048
     Dates: start: 20200303, end: 20200304
  19. EMEND [Concomitant]
     Active Substance: APREPITANT
     Route: 048
     Dates: start: 20200304, end: 20200305
  20. EMEND [Concomitant]
     Active Substance: APREPITANT
     Route: 048
     Dates: start: 20200325, end: 20200325
  21. EMEND [Concomitant]
     Active Substance: APREPITANT
     Route: 048
     Dates: start: 20200326, end: 20200327
  22. EMEND [Concomitant]
     Active Substance: APREPITANT
     Route: 048
     Dates: start: 20200415, end: 20200415
  23. EMEND [Concomitant]
     Active Substance: APREPITANT
     Route: 048
     Dates: start: 20200416, end: 20200417
  24. EMEND [Concomitant]
     Active Substance: APREPITANT
     Route: 048
     Dates: start: 20200508, end: 20200508
  25. EMEND [Concomitant]
     Active Substance: APREPITANT
     Route: 048
     Dates: start: 20200509, end: 20200510
  26. DECADRON [Concomitant]
     Active Substance: DEXAMETHASONE
     Indication: Prophylaxis
     Route: 048
     Dates: start: 20200211, end: 20200213
  27. DECADRON [Concomitant]
     Active Substance: DEXAMETHASONE
     Route: 048
     Dates: start: 20200304, end: 20200306
  28. DECADRON [Concomitant]
     Active Substance: DEXAMETHASONE
     Route: 048
     Dates: start: 20200326, end: 20200328
  29. DECADRON [Concomitant]
     Active Substance: DEXAMETHASONE
     Route: 048
     Dates: start: 20200416, end: 20200418
  30. DECADRON [Concomitant]
     Active Substance: DEXAMETHASONE
     Route: 048
     Dates: start: 20200509, end: 20200511
  31. MORPHINE HYDROCHLORIDE [Concomitant]
     Active Substance: MORPHINE HYDROCHLORIDE
     Indication: Pain
     Route: 048
     Dates: start: 20200213
  32. FENTANYL [Concomitant]
     Active Substance: FENTANYL
     Indication: Pain
     Route: 062
     Dates: start: 20200219, end: 2020
  33. ACETAMINOPHEN\TRAMADOL HYDROCHLORIDE [Concomitant]
     Active Substance: ACETAMINOPHEN\TRAMADOL HYDROCHLORIDE
     Indication: Pain
     Route: 048
     Dates: start: 20200220, end: 20200226
  34. URSODIOL [Concomitant]
     Active Substance: URSODIOL
     Indication: Prophylaxis
     Route: 048
     Dates: start: 20200220
  35. EDOXABAN TOSYLATE [Concomitant]
     Active Substance: EDOXABAN TOSYLATE
     Indication: Deep vein thrombosis
     Route: 048
     Dates: end: 20200413
  36. CALONAL [Concomitant]
     Active Substance: ACETAMINOPHEN
     Indication: Pain
     Route: 048
     Dates: end: 20200324
  37. PREDONINE [Concomitant]
     Active Substance: PREDNISOLONE
     Indication: Pruritus
     Route: 048
  38. TALION [Concomitant]
     Indication: Pruritus
     Route: 048
  39. BETAMETHASONE DIPROPIONATE [Concomitant]
     Active Substance: BETAMETHASONE DIPROPIONATE
     Indication: Pruritus
     Dosage: DOSAGE IS UNCERTAIN.
     Route: 003
  40. OMEPRAZOLE [Concomitant]
     Active Substance: OMEPRAZOLE
     Indication: Pruritus
     Route: 048
  41. CALCIUM CARBONATE\CHOLECALCIFEROL\MAGNESIUM CARBONATE [Concomitant]
     Active Substance: CALCIUM CARBONATE\CHOLECALCIFEROL\MAGNESIUM CARBONATE
     Indication: Prophylaxis
     Route: 048
     Dates: start: 2020
  42. LEVOFLOXACIN HEMIHYDRATE [Concomitant]
     Active Substance: LEVOFLOXACIN
     Indication: Prophylaxis
     Route: 048
     Dates: start: 20200415, end: 20200418
  43. AMINO ACIDS\DEXTROSE\ELECTROLYTES NOS\VITAMINS [Concomitant]
     Active Substance: AMINO ACIDS\DEXTROSE\ELECTROLYTES NOS\VITAMINS
     Route: 042
     Dates: start: 20200225, end: 20200225
  44. AMINO ACIDS\DEXTROSE\ELECTROLYTES NOS\VITAMINS [Concomitant]
     Active Substance: AMINO ACIDS\DEXTROSE\ELECTROLYTES NOS\VITAMINS
     Route: 042
     Dates: start: 20200702
  45. DENOSUMAB [Concomitant]
     Active Substance: DENOSUMAB
     Indication: Metastases to bone
     Route: 058
     Dates: start: 2020

REACTIONS (17)
  - Erythema multiforme [Unknown]
  - Decreased appetite [Unknown]
  - Fatigue [Unknown]
  - Gingival swelling [Unknown]
  - Epistaxis [Unknown]
  - Weight decreased [Unknown]
  - Dry skin [Unknown]
  - Urinary tract obstruction [Not Recovered/Not Resolved]
  - Metastases to liver [Unknown]
  - Hydronephrosis [Unknown]
  - Neutrophil count decreased [Unknown]
  - Lymphocyte count decreased [Unknown]
  - Constipation [Unknown]
  - Decreased appetite [Unknown]
  - Fatigue [Unknown]
  - Pain [Unknown]
  - Proteinuria [Unknown]

NARRATIVE: CASE EVENT DATE: 20200212
